FAERS Safety Report 4268553-4 (Version None)
Quarter: 2004Q1

REPORT INFORMATION
  Report Type: 
  Country: None (occurrence: None)
  Receive Date: 20040108
  Receipt Date: 20031229
  Transmission Date: 20041129
  Serious: Yes (Hospitalization)
  Sender: FDA-Public Use
  Company Number: US-JNJFOC-20031205512

PATIENT
  Age: 65 Year
  Sex: Female

DRUGS (12)
  1. INFLIXIMAB (INFLIXIMAB, RECOMBINANT) LYOPHILIZED POWDER [Suspect]
     Indication: RHEUMATOID ARTHRITIS
     Dosage: INTRAVENOUS
     Route: 042
     Dates: start: 20010507
  2. PREDNISONE [Concomitant]
  3. DARVOCET (PROPACET) [Concomitant]
  4. SINGULAIR [Concomitant]
  5. ZOCOR [Concomitant]
  6. METFORMIN HCL [Concomitant]
  7. ZYRTEC [Concomitant]
  8. K-DUR 10 [Concomitant]
  9. QUININE [Concomitant]
  10. FOSAMAX [Concomitant]
  11. ADVAIR (SERETIDE MITE) [Concomitant]
  12. VALTREX [Concomitant]

REACTIONS (5)
  - ATELECTASIS [None]
  - BLOOD GLUCOSE INCREASED [None]
  - CHRONIC OBSTRUCTIVE AIRWAYS DISEASE [None]
  - LUNG INFILTRATION [None]
  - PLEURAL EFFUSION [None]
